FAERS Safety Report 6259616-2 (Version None)
Quarter: 2009Q3

REPORT INFORMATION
  Report Type: 
  Country: None (occurrence: None)
  Receive Date: 20090708
  Receipt Date: 20090701
  Transmission Date: 20100115
  Serious: No
  Sender: FDA-Public Use
  Company Number: DE-JNJFOC-20090700062

PATIENT
  Age: 55 Year
  Sex: Male

DRUGS (3)
  1. FENTANYL-25 [Suspect]
     Indication: DRUG USE FOR UNKNOWN INDICATION
     Route: 062
  2. AMITRIPTYLINE HCL [Concomitant]
     Indication: HEADACHE
     Route: 065
  3. ARLEVERT [Concomitant]
     Indication: DIZZINESS
     Route: 065

REACTIONS (4)
  - HEADACHE [None]
  - HYPOTONIA [None]
  - INCORRECT DRUG ADMINISTRATION DURATION [None]
  - PAIN [None]
